FAERS Safety Report 6709666-4 (Version None)
Quarter: 2010Q2

REPORT INFORMATION
  Report Type: 
  Country: None (occurrence: None)
  Receive Date: 20100503
  Receipt Date: 20100503
  Transmission Date: 20101027
  Serious: Yes (Other)
  Sender: FDA-Public Use
  Company Number: None

PATIENT
  Age: 15 Month
  Sex: Female
  Weight: 9.0719 kg

DRUGS (3)
  1. CHILDREN'S MOTRIN [Suspect]
     Indication: TEETHING
     Dosage: .5 TSP 6 HOURS PO
     Route: 048
     Dates: start: 20100501, end: 20100501
  2. MOTRIN [Suspect]
     Indication: EAR INFECTION
     Dosage: .8 ML 8 HOURS PO
     Route: 048
     Dates: start: 20100401, end: 20100430
  3. MOTRIN [Suspect]
     Indication: NASOPHARYNGITIS
     Dosage: .8 ML 8 HOURS PO
     Route: 048
     Dates: start: 20100401, end: 20100430

REACTIONS (5)
  - EAR INFECTION [None]
  - HYPERSENSITIVITY [None]
  - NASOPHARYNGITIS [None]
  - PRODUCT QUALITY ISSUE [None]
  - SOMNOLENCE [None]
